FAERS Safety Report 17236998 (Version 1)
Quarter: 2019Q4

REPORT INFORMATION
  Report Type: Spontaneous
  Country: US (occurrence: US)
  Receive Date: 20191211
  Receipt Date: 20191211
  Transmission Date: 20200122
  Serious: No
  Sender: FDA-Public Use
  Company Number: None

PATIENT

DRUGS (2)
  1. RECOTHROM [Suspect]
     Active Substance: THROMBIN ALFA
  2. THROMBATE III [Suspect]
     Active Substance: ANTITHROMBIN III HUMAN

REACTIONS (8)
  - Intracardiac thrombus [None]
  - Wrong technique in device usage process [None]
  - Product name confusion [None]
  - Transcription medication error [None]
  - Cardiac disorder [None]
  - Wrong product administered [None]
  - Product dispensing error [None]
  - Thrombosis in device [None]
